FAERS Safety Report 9678247 (Version 1)
Quarter: 2013Q4

REPORT INFORMATION
  Report Type: Spontaneous
  Country: GB (occurrence: GB)
  Receive Date: 20131108
  Receipt Date: 20131108
  Transmission Date: 20140711
  Serious: Yes (Other)
  Sender: FDA-Public Use
  Company Number: GB-WATSON-2013-20556

PATIENT
  Age: 26 Year
  Sex: Female
  Weight: 63 kg

DRUGS (4)
  1. FOLIC ACID (UNKNOWN) [Suspect]
     Indication: PRODUCT USED FOR UNKNOWN INDICATION
     Dosage: 1 DF, DAILY
     Route: 065
  2. STAMARIL [Suspect]
     Indication: IMMUNISATION
     Dosage: 1 ST DOSE UNK
     Route: 065
     Dates: start: 20130805, end: 20130805
  3. PROGUANIL [Suspect]
     Indication: MALARIA PROPHYLAXIS
     Dosage: 100 MG, UNKNOWN
     Route: 065
  4. ATOVAQUONE [Suspect]
     Indication: PRODUCT USED FOR UNKNOWN INDICATION
     Dosage: 250 MG, UNKNOWN
     Route: 065

REACTIONS (2)
  - Vaginal haemorrhage [Unknown]
  - Exposure during pregnancy [Unknown]
